FAERS Safety Report 7227055-3 (Version None)
Quarter: 2011Q1

REPORT INFORMATION
  Report Type: 
  Country: None (occurrence: None)
  Receive Date: 20110114
  Receipt Date: 20101111
  Transmission Date: 20110831
  Serious: Yes (Hospitalization, Other)
  Sender: FDA-Public Use
  Company Number: PHEH2009US15176

PATIENT
  Sex: Male

DRUGS (5)
  1. EXJADE [Suspect]
     Indication: MYELODYSPLASTIC SYNDROME
     Dosage: 250 MG DAILY
     Route: 048
     Dates: start: 20080101
  2. EXJADE [Suspect]
     Indication: IRON OVERLOAD
     Dosage: 125 MG, QD
     Route: 048
  3. EXJADE [Suspect]
     Indication: BLOOD DISORDER
  4. REVLIMID [Concomitant]
     Dosage: UNK
  5. EXJADE [Suspect]
     Indication: LYMPHATIC DISORDER

REACTIONS (2)
  - PNEUMONIA [None]
  - SEPSIS [None]
